FAERS Safety Report 5254304-3 (Version None)
Quarter: 2007Q1

REPORT INFORMATION
  Report Type: 
  Country: None (occurrence: None)
  Receive Date: 20070302
  Receipt Date: 20070222
  Transmission Date: 20070707
  Serious: Yes (Hospitalization)
  Sender: FDA-Public Use
  Company Number: 2007PK00504

PATIENT
  Age: 59 Year
  Sex: Female
  Weight: 58 kg

DRUGS (3)
  1. ZOMIG [Suspect]
     Indication: MIGRAINE PROPHYLAXIS
     Dosage: TWO TABLETS A DAY
     Route: 048
     Dates: start: 20061231, end: 20070101
  2. AMITRIPTYLINE HCL [Concomitant]
     Route: 048
     Dates: start: 20061031
  3. EFFEXOR [Concomitant]
     Route: 048
     Dates: start: 20061031

REACTIONS (3)
  - CYANOSIS [None]
  - DYSPNOEA [None]
  - PARAESTHESIA [None]
